FAERS Safety Report 6674716-0 (Version None)
Quarter: 2010Q2

REPORT INFORMATION
  Report Type: 
  Country: None (occurrence: None)
  Receive Date: 20100409
  Receipt Date: 20100329
  Transmission Date: 20101027
  Serious: Yes (Hospitalization)
  Sender: FDA-Public Use
  Company Number: FR-PFIZER INC-2010039519

PATIENT
  Age: 41 Year
  Sex: Male

DRUGS (12)
  1. ANSATIPINE [Suspect]
     Indication: MYCOBACTERIUM AVIUM COMPLEX INFECTION
     Dosage: 300 MG PER DAY
     Route: 048
     Dates: start: 20100101
  2. ZECLAR [Suspect]
     Indication: MYCOBACTERIUM AVIUM COMPLEX INFECTION
     Dosage: 500 MG, ALTERNATE DAY
     Dates: start: 20100101
  3. FUZEON [Concomitant]
     Indication: HIV INFECTION
     Dosage: UNK
     Dates: start: 20090901
  4. ABACAVIR/LAMIVUDINE [Concomitant]
     Indication: HIV INFECTION
     Dosage: UNK
     Dates: start: 20090901
  5. ISENTRESS [Concomitant]
     Indication: HIV INFECTION
     Dosage: UNK
     Dates: start: 20090901
  6. BACTRIM [Concomitant]
     Indication: PROPHYLAXIS
     Dosage: UNK
     Dates: start: 20090901
  7. DOMPERIDONE [Concomitant]
     Dosage: UNK
  8. IMOVANE [Concomitant]
     Dosage: UNK
  9. CRESTOR [Concomitant]
     Dosage: UNK
  10. IZILOX [Concomitant]
     Indication: MYCOBACTERIUM AVIUM COMPLEX INFECTION
     Dosage: UNK
     Dates: start: 20091201
  11. RIFATER [Concomitant]
     Indication: MYCOBACTERIUM AVIUM COMPLEX INFECTION
     Dosage: UNK
     Dates: start: 20091201, end: 20100101
  12. MYAMBUTOL [Concomitant]
     Indication: MYCOBACTERIUM AVIUM COMPLEX INFECTION
     Dosage: UNK
     Dates: start: 20100101

REACTIONS (3)
  - LEUKOPENIA [None]
  - NEUTROPENIA [None]
  - RHABDOMYOLYSIS [None]
